FAERS Safety Report 5280436-X (Version None)
Quarter: 2007Q1

REPORT INFORMATION
  Report Type: 
  Country: None (occurrence: None)
  Receive Date: 20061229
  Receipt Date: 20060824
  Transmission Date: 20070707
  Serious: Yes (Other)
  Sender: FDA-Public Use
  Company Number: 2006UW16771

PATIENT
  Age: 55 Year
  Sex: Female
  Weight: 68.038 kg

DRUGS (8)
  1. CRESTOR [Suspect]
     Indication: BLOOD CHOLESTEROL INCREASED
     Dosage: 10 MG; PO
     Route: 048
     Dates: start: 20060601, end: 20060803
  2. CRESTOR [Suspect]
     Indication: BLOOD CHOLESTEROL INCREASED
     Dosage: 5 MG; PO
     Route: 048
     Dates: start: 20060803
  3. RITHMOL [Concomitant]
  4. COREG [Concomitant]
  5. DIGOXIN [Concomitant]
  6. ALTACE [Concomitant]
  7. WARFARIN SODIUM [Concomitant]
  8. PREVACID [Concomitant]

REACTIONS (2)
  - BLOOD CHOLESTEROL DECREASED [None]
  - MUSCLE SPASMS [None]
